FAERS Safety Report 11418824 (Version 1)
Quarter: 2015Q3

REPORT INFORMATION
  Report Type: Spontaneous
  Country: US (occurrence: None)
  Receive Date: 20150825
  Receipt Date: 20150825
  Transmission Date: 20151125
  Serious: Yes (Death, Hospitalization)
  Sender: FDA-Public Use
  Company Number: None

PATIENT
  Age: 75 Year
  Sex: Male
  Weight: 72 kg

DRUGS (7)
  1. BEVACIZUMAB (RHUMAB VEGF) [Suspect]
     Active Substance: BEVACIZUMAB
     Dates: end: 20150702
  2. ATENOLOL. [Concomitant]
     Active Substance: ATENOLOL
  3. MELATONIN [Concomitant]
     Active Substance: MELATONIN
  4. DEXAMETHAZONE [Concomitant]
     Active Substance: DEXAMETHASONE
  5. KEPPRA [Concomitant]
     Active Substance: LEVETIRACETAM
  6. ASPIRIN. [Concomitant]
     Active Substance: ASPIRIN
  7. OXYBUTININ [Concomitant]
     Active Substance: OXYBUTYNIN\OXYBUTYNIN CHLORIDE

REACTIONS (11)
  - Chest discomfort [None]
  - Disease progression [None]
  - Faecal incontinence [None]
  - Blood pressure fluctuation [None]
  - Pneumonia aspiration [None]
  - Diarrhoea [None]
  - Seizure [None]
  - Night sweats [None]
  - Platelet count decreased [None]
  - Abdominal discomfort [None]
  - Diverticulitis [None]

NARRATIVE: CASE EVENT DATE: 20150720
